FAERS Safety Report 4323769-3 (Version None)
Quarter: 2004Q1

REPORT INFORMATION
  Report Type: 
  Country: None (occurrence: None)
  Receive Date: 20040323
  Receipt Date: 20040310
  Transmission Date: 20041129
  Serious: Yes (Hospitalization)
  Sender: FDA-Public Use
  Company Number: 2004016728

PATIENT
  Age: 62 Year
  Sex: Female
  Weight: 66 kg

DRUGS (6)
  1. LIPITOR (ATORVATATIN) [Suspect]
     Indication: HYPERCHOLESTEROLAEMIA
     Dosage: 10 MG (DAILY), ORAL
     Route: 048
     Dates: start: 20030514, end: 20030901
  2. VALSARTAN (VALSARTAN) [Suspect]
     Indication: HYPERTENSION
     Dosage: 80 MG (DAILY), ORAL
     Route: 048
     Dates: start: 20030207, end: 20030901
  3. GLYBURIDE [Suspect]
     Indication: DIABETES MELLITUS
     Dosage: 7.5 MG (DAILY), ORAL
     Route: 048
     Dates: start: 20000216, end: 20030901
  4. METFORMIN HCL [Suspect]
     Indication: ILL-DEFINED DISORDER
     Dates: end: 20030901
  5. MECOBALAMIN (MECOBALAMIN) [Suspect]
     Indication: DIABETES MELLITUS
     Dosage: 1.5 MG (DAILY), ORAL
     Route: 048
     Dates: start: 20000826, end: 20030901
  6. ACETYLSALICYLIC ACID SRT [Suspect]
     Indication: ANGINA PECTORIS
     Dosage: 100 MG (DAILY), ORAL
     Route: 048
     Dates: start: 20030227, end: 20030901

REACTIONS (6)
  - ACUTE MYOCARDIAL INFARCTION [None]
  - ANGINA PECTORIS [None]
  - BLOOD PRESSURE INCREASED [None]
  - CHEST PAIN [None]
  - CORONARY ARTERY STENOSIS [None]
  - ELECTROCARDIOGRAM T WAVE INVERSION [None]
